FAERS Safety Report 14395048 (Version 2)
Quarter: 2018Q1

REPORT INFORMATION
  Report Type: Spontaneous
  Country: US (occurrence: US)
  Receive Date: 20180116
  Receipt Date: 20180222
  Transmission Date: 20180509
  Serious: Yes (Other)
  Sender: FDA-Public Use
  Company Number: US-IMPAX LABORATORIES, INC-2018-IPXL-00095

PATIENT
  Age: 64 Year
  Sex: Male

DRUGS (5)
  1. RYTARY [Suspect]
     Active Substance: CARBIDOPA\LEVODOPA
     Indication: PRODUCT USED FOR UNKNOWN INDICATION
     Dosage: UNK
     Route: 065
     Dates: end: 2017
  2. NORTHERA [Interacting]
     Active Substance: DROXIDOPA
     Indication: PRODUCT USED FOR UNKNOWN INDICATION
     Dosage: 100 MG, 3 /DAY
     Route: 048
     Dates: start: 20170802
  3. KLONOPIN [Concomitant]
     Active Substance: CLONAZEPAM
     Dosage: UNK UNK, PRN
     Route: 065
     Dates: start: 201712
  4. NORTHERA [Interacting]
     Active Substance: DROXIDOPA
     Dosage: 100 MG, 2 /DAY (AT  8 AM AND 12 PM)
     Route: 048
     Dates: start: 20170809
  5. KLONOPIN [Concomitant]
     Active Substance: CLONAZEPAM
     Indication: HYPERTENSION
     Dosage: UNK
     Route: 065

REACTIONS (6)
  - Diarrhoea [Unknown]
  - Vision blurred [Recovered/Resolved]
  - Drug effect incomplete [Unknown]
  - Drug interaction [Unknown]
  - Hypertension [Unknown]
  - Decreased appetite [Unknown]

NARRATIVE: CASE EVENT DATE: 20170802
